FAERS Safety Report 10232842 (Version 1)
Quarter: 2014Q2

REPORT INFORMATION
  Report Type: Spontaneous
  Country: US (occurrence: US)
  Receive Date: 20140612
  Receipt Date: 20140612
  Transmission Date: 20141212
  Serious: Yes (Hospitalization)
  Sender: FDA-Public Use
  Company Number: US-NOVOPROD-412658

PATIENT
  Age: 40 Year
  Sex: Male
  Weight: 85.26 kg

DRUGS (1)
  1. LEVEMIR FLEXPEN [Suspect]
     Indication: DIABETES MELLITUS
     Dosage: 15 U, QD AT BEDTIME
     Route: 058
     Dates: start: 20140530

REACTIONS (1)
  - Chest pain [Not Recovered/Not Resolved]
